FAERS Safety Report 9467085 (Version 6)
Quarter: 2013Q4

REPORT INFORMATION
  Report Type: Report from Study
  Country: US (occurrence: US)
  Receive Date: 20130820
  Receipt Date: 20131030
  Transmission Date: 20140711
  Serious: Yes (Death, Life-Threatening, Hospitalization)
  Sender: FDA-Public Use
  Company Number: US-PFIZER INC-2013235845

PATIENT
  Age: 69 Year
  Sex: Female
  Weight: 50 kg

DRUGS (11)
  1. FUSILEV [Suspect]
     Indication: COLORECTAL CANCER STAGE IV
     Dosage: 310 MG, CYCLIC
     Route: 042
     Dates: start: 20130729, end: 20130729
  2. AVASTIN [Suspect]
     Indication: COLORECTAL CANCER STAGE IV
     Dosage: 263 MG, CYCLIC
     Route: 042
     Dates: start: 20130729, end: 20130729
  3. ACYCLOVIR [Concomitant]
     Indication: MUCOSAL INFLAMMATION
     Dosage: 400 MG, 3X/DAY
     Route: 048
     Dates: start: 20130805
  4. DIFLUCAN [Concomitant]
     Indication: MUCOSAL INFLAMMATION
     Dosage: 200 MG, 1X/DAY
     Route: 048
     Dates: start: 20130805
  5. ZOFRAN [Concomitant]
     Indication: NAUSEA
     Dosage: 16 MG, AS NEEDED
     Route: 042
     Dates: start: 20130801
  6. DECADRON [Concomitant]
     Indication: NAUSEA
     Dosage: 10 MG, AS NEEDED
     Route: 042
     Dates: start: 20130801
  7. L-GLUTAMINE [Concomitant]
     Indication: MUCOSAL INFLAMMATION
     Dosage: 10 MG, 1X/DAY
     Route: 048
     Dates: start: 20130802
  8. IMODIUM A-D [Concomitant]
     Indication: DIARRHOEA
     Dosage: 1 DF, AS NEEDED
     Route: 048
     Dates: start: 20130801
  9. FLUOROURACIL [Suspect]
     Indication: COLORECTAL CANCER STAGE IV
     Dosage: 620 MG, CYCLIC
     Route: 042
     Dates: start: 20130729, end: 20130729
  10. FLUOROURACIL [Suspect]
     Dosage: 3700 MG, ROUTE: CIV
     Route: 042
     Dates: start: 20130729, end: 20130731
  11. OXALIPLATIN [Suspect]
     Indication: COLORECTAL CANCER STAGE IV
     Dosage: 132 MG, CYCLIC
     Route: 042
     Dates: start: 20130729, end: 20130729

REACTIONS (3)
  - Febrile neutropenia [Fatal]
  - Thrombocytopenia [Fatal]
  - Respiratory failure [Fatal]
